FAERS Safety Report 23093864 (Version 1)
Quarter: 2023Q4

REPORT INFORMATION
  Report Type: Spontaneous
  Country: US (occurrence: US)
  Receive Date: 20231023
  Receipt Date: 20231023
  Transmission Date: 20240109
  Serious: Yes (Other)
  Sender: FDA-Public Use
  Company Number: US-CHEPLA-2023013107

PATIENT
  Age: 86 Year
  Sex: Female
  Weight: 53.06 kg

DRUGS (3)
  1. HYDROXYUREA [Suspect]
     Active Substance: HYDROXYUREA
     Indication: Product used for unknown indication
     Dates: end: 202307
  2. JAKAFI [Suspect]
     Active Substance: RUXOLITINIB
     Indication: Polycythaemia vera
     Dosage: BID?DAILY DOSE: 20 MILLIGRAM
     Route: 048
     Dates: start: 20230327
  3. JAKAFI [Suspect]
     Active Substance: RUXOLITINIB
     Indication: Polycythaemia vera
     Dosage: DAILY DOSE: 10 MILLIGRAM
     Route: 048
     Dates: start: 202307

REACTIONS (6)
  - Eye haemorrhage [Unknown]
  - Anaemia [Recovering/Resolving]
  - Mydriasis [Unknown]
  - Abdominal distension [Unknown]
  - Splenomegaly [Unknown]
  - Platelet count decreased [Recovered/Resolved]

NARRATIVE: CASE EVENT DATE: 20230620
